FAERS Safety Report 25381636 (Version 1)
Quarter: 2025Q2

REPORT INFORMATION
  Report Type: Spontaneous
  Country: CN (occurrence: CN)
  Receive Date: 20250531
  Receipt Date: 20250531
  Transmission Date: 20250716
  Serious: Yes (Disabling)
  Sender: AMGEN
  Company Number: CN-AMGEN-CHNSP2025103627

PATIENT
  Age: 64 Year
  Sex: Female
  Weight: 57.5 kg

DRUGS (11)
  1. CARFILZOMIB [Suspect]
     Active Substance: CARFILZOMIB
     Indication: Plasma cell myeloma
     Dosage: 31 MILLIGRAM, QD, IVGTT
     Route: 040
     Dates: start: 20250325, end: 20250326
  2. CARFILZOMIB [Suspect]
     Active Substance: CARFILZOMIB
     Dosage: 42 MILLIGRAM, QD, IVGTT
     Route: 040
     Dates: start: 20250401, end: 20250402
  3. CARFILZOMIB [Suspect]
     Active Substance: CARFILZOMIB
     Dosage: 42 MILLIGRAM, QD, IVGTT
     Route: 040
     Dates: start: 20250408, end: 20250409
  4. CARFILZOMIB [Suspect]
     Active Substance: CARFILZOMIB
     Dosage: 31 MILLIGRAM, QD, IVGTT
     Route: 040
     Dates: start: 20250519, end: 20250520
  5. STERILE WATER [Suspect]
     Active Substance: WATER
     Indication: Product used for unknown indication
     Route: 040
     Dates: start: 20250325, end: 20250326
  6. STERILE WATER [Suspect]
     Active Substance: WATER
     Route: 040
     Dates: start: 20250401, end: 20250402
  7. STERILE WATER [Suspect]
     Active Substance: WATER
     Route: 040
     Dates: start: 20250408, end: 20250409
  8. STERILE WATER [Suspect]
     Active Substance: WATER
     Route: 040
     Dates: start: 20250519, end: 20250520
  9. DEXTROSE [Concomitant]
     Active Substance: DEXTROSE MONOHYDRATE
     Route: 040
     Dates: start: 20250325, end: 20250326
  10. DEXTROSE [Concomitant]
     Active Substance: DEXTROSE MONOHYDRATE
     Route: 040
     Dates: start: 20250401, end: 20250402
  11. DEXTROSE [Concomitant]
     Active Substance: DEXTROSE MONOHYDRATE
     Route: 040
     Dates: start: 20250408, end: 20250409

REACTIONS (1)
  - Myocardial injury [Unknown]

NARRATIVE: CASE EVENT DATE: 20250516
